FAERS Safety Report 10525980 (Version 2)
Quarter: 2014Q4

REPORT INFORMATION
  Report Type: Report from Study
  Country: BR (occurrence: BR)
  Receive Date: 20141017
  Receipt Date: 20141030
  Transmission Date: 20150528
  Serious: Yes (Other)
  Sender: FDA-Public Use
  Company Number: PHHY2014BR136133

PATIENT
  Sex: Female
  Weight: 66 kg

DRUGS (1)
  1. ACLASTA [Suspect]
     Active Substance: ZOLEDRONIC ACID
     Indication: OSTEOPOROSIS
     Dosage: ONCE A YEAR
     Route: 042
     Dates: start: 201311

REACTIONS (3)
  - Femur fracture [Not Recovered/Not Resolved]
  - Post procedural complication [Unknown]
  - Pain in extremity [Not Recovered/Not Resolved]
